FAERS Safety Report 23321601 (Version 2)
Quarter: 2023Q4

REPORT INFORMATION
  Report Type: Spontaneous
  Country: US (occurrence: US)
  Receive Date: 20231220
  Receipt Date: 20231220
  Transmission Date: 20240109
  Serious: No
  Sender: FDA-Public Use
  Company Number: US-ABBVIE-5547769

PATIENT
  Sex: Female

DRUGS (1)
  1. OXYTROL [Suspect]
     Active Substance: OXYBUTYNIN
     Indication: Product used for unknown indication
     Dosage: 3.9MG/DAY
     Route: 065
     Dates: start: 2023

REACTIONS (3)
  - Rash [Unknown]
  - Application site pruritus [Unknown]
  - Application site erythema [Unknown]
